FAERS Safety Report 6707242-0 (Version None)
Quarter: 2010Q2

REPORT INFORMATION
  Report Type: 
  Country: None (occurrence: None)
  Receive Date: 20100503
  Receipt Date: 20090316
  Transmission Date: 20101027
  Serious: No
  Sender: FDA-Public Use
  Company Number: US-ASTRAZENECA-2009UW06763

PATIENT
  Age: 48 Year
  Sex: Male
  Weight: 64.9 kg

DRUGS (6)
  1. NEXIUM [Suspect]
     Indication: GASTROOESOPHAGEAL REFLUX DISEASE
     Route: 048
     Dates: start: 20090306
  2. PRILOSEC [Suspect]
     Indication: ABDOMINAL DISCOMFORT
     Route: 048
     Dates: start: 20090214, end: 20090306
  3. TIGAN [Concomitant]
  4. REGLAN [Concomitant]
  5. VALIUM [Concomitant]
  6. PREDNISONE [Concomitant]

REACTIONS (6)
  - ANXIETY [None]
  - FAECES DISCOLOURED [None]
  - IRRITABILITY [None]
  - PANIC ATTACK [None]
  - PRURITUS [None]
  - TREMOR [None]
